FAERS Safety Report 8093127-7 (Version None)
Quarter: 2012Q1

REPORT INFORMATION
  Report Type: 
  Country: None (occurrence: None)
  Receive Date: 20120128
  Receipt Date: 20111026
  Transmission Date: 20120608
  Serious: No
  Sender: FDA-Public Use
  Company Number: US-ABBOTT-11P-163-0841889-00

PATIENT
  Age: 35 Year
  Sex: Male

DRUGS (2)
  1. HUMIRA [Suspect]
     Indication: PSORIASIS
     Dosage: INTERRUPTED D/T PHARMACY ISSUES
     Dates: start: 20110301, end: 20110622
  2. HUMIRA [Suspect]
     Dates: start: 20110714

REACTIONS (2)
  - REBOUND PSORIASIS [None]
  - PSORIASIS [None]
